FAERS Safety Report 4278593-7 (Version None)
Quarter: 2004Q1

REPORT INFORMATION
  Report Type: 
  Country: None (occurrence: None)
  Receive Date: 20040123
  Receipt Date: 20040123
  Transmission Date: 20041129
  Serious: Yes (Death)
  Sender: FDA-Public Use
  Company Number: None

PATIENT
  Age: 16 Year
  Sex: Male
  Weight: 72.5755 kg

DRUGS (2)
  1. FLUOXETINE [Suspect]
     Indication: OBSESSIVE-COMPULSIVE DISORDER
     Dosage: 20MG 3 TIMES ORAL
     Route: 048
     Dates: start: 20010924, end: 20030531
  2. FLUOXETINE [Suspect]
     Indication: TOURETTE'S DISORDER
     Dosage: 20MG 3 TIMES ORAL
     Route: 048
     Dates: start: 20010924, end: 20030531

REACTIONS (1)
  - COMPLETED SUICIDE [None]
